FAERS Safety Report 12335334 (Version 2)
Quarter: 2017Q1

REPORT INFORMATION
  Report Type: Spontaneous
  Country: HU (occurrence: HU)
  Receive Date: 20160504
  Receipt Date: 20170209
  Transmission Date: 20170428
  Serious: Yes (Other)
  Sender: FDA-Public Use
  Company Number: HU-BIOGEN-2015BI074442

PATIENT
  Age: 33 Year
  Sex: Female

DRUGS (1)
  1. TYSABRI [Suspect]
     Active Substance: NATALIZUMAB
     Indication: MULTIPLE SCLEROSIS
     Dosage: INFUSED OVER 1 HOUR
     Route: 042
     Dates: start: 20130515, end: 20150513

REACTIONS (2)
  - Maternal exposure during pregnancy [Recovered/Resolved]
  - Bradycardia foetal [Recovered/Resolved]

NARRATIVE: CASE EVENT DATE: 20160122
